FAERS Safety Report 23269625 (Version 2)
Quarter: 2024Q1

REPORT INFORMATION
  Report Type: Report from Study
  Country: US (occurrence: US)
  Receive Date: 20231207
  Receipt Date: 20240103
  Transmission Date: 20240410
  Serious: Yes (Other)
  Sender: FDA-Public Use
  Company Number: US-TAKEDA-2023TUS089260

PATIENT
  Sex: Male

DRUGS (2)
  1. BRIGATINIB [Suspect]
     Active Substance: BRIGATINIB
     Indication: Lung neoplasm malignant
     Dosage: 90 MILLIGRAM, QD
     Route: 048
     Dates: start: 20230821, end: 20231121
  2. BRIGATINIB [Suspect]
     Active Substance: BRIGATINIB
     Indication: Bone cancer

REACTIONS (4)
  - Lung neoplasm malignant [Unknown]
  - Drug ineffective [Unknown]
  - Product dose omission issue [Unknown]
  - Off label use [Unknown]
